FAERS Safety Report 4838555-5 (Version None)
Quarter: 2005Q4

REPORT INFORMATION
  Report Type: 
  Country: None (occurrence: None)
  Receive Date: 20051123
  Receipt Date: 20051123
  Transmission Date: 20060501
  Serious: Yes (Hospitalization)
  Sender: FDA-Public Use
  Company Number: None

PATIENT
  Age: 23 Year
  Sex: Female

DRUGS (2)
  1. RIFAMPIN [Suspect]
     Indication: CELLULITIS
     Dosage: 300 MG BID PO
     Route: 048
     Dates: start: 20050814, end: 20050816
  2. METHADONE [Suspect]
     Indication: DRUG DEPENDENCE
     Dosage: 100 MG DAILY PO
     Route: 048
     Dates: start: 20050515, end: 20050816

REACTIONS (11)
  - ARTHROPOD BITE [None]
  - CONVULSION [None]
  - DRUG INTERACTION [None]
  - DRUG WITHDRAWAL SYNDROME [None]
  - GRAND MAL CONVULSION [None]
  - INSOMNIA [None]
  - NAUSEA [None]
  - PULSE PRESSURE DECREASED [None]
  - RESTLESSNESS [None]
  - RHINORRHOEA [None]
  - TACHYCARDIA [None]
